FAERS Safety Report 23912124 (Version 1)
Quarter: 2024Q2

REPORT INFORMATION
  Report Type: Spontaneous
  Country: CN (occurrence: CN)
  Receive Date: 20240528
  Receipt Date: 20240528
  Transmission Date: 20240716
  Serious: Yes (Hospitalization)
  Sender: FDA-Public Use
  Company Number: CN-SANDOZ-SDZ2024CN052541

PATIENT
  Age: 77 Year
  Sex: Male

DRUGS (3)
  1. VORICONAZOLE [Suspect]
     Active Substance: VORICONAZOLE
     Indication: Chronic obstructive pulmonary disease
     Dosage: 200 MG, BID
     Route: 048
     Dates: start: 20240517, end: 20240519
  2. VORICONAZOLE [Suspect]
     Active Substance: VORICONAZOLE
     Indication: Pneumonia
  3. VORICONAZOLE [Suspect]
     Active Substance: VORICONAZOLE
     Indication: Tuberculosis

REACTIONS (2)
  - Mental status changes [Recovered/Resolved]
  - Speech disorder [Recovered/Resolved]

NARRATIVE: CASE EVENT DATE: 20240519
